FAERS Safety Report 17927947 (Version 1)
Quarter: 2020Q2

REPORT INFORMATION
  Report Type: Spontaneous
  Country: AT (occurrence: AT)
  Receive Date: 20200622
  Receipt Date: 20200622
  Transmission Date: 20200714
  Serious: Yes (Death, Other)
  Sender: FDA-Public Use
  Company Number: AT-SEATTLE GENETICS-2020SGN02693

PATIENT
  Age: 15 Year
  Sex: Female

DRUGS (1)
  1. ADCETRIS [Suspect]
     Active Substance: BRENTUXIMAB VEDOTIN
     Indication: LYMPHOMA
     Route: 065

REACTIONS (8)
  - Cardiac failure [Unknown]
  - Renal failure [Unknown]
  - Off label use [Unknown]
  - Immunodeficiency [Unknown]
  - Death [Fatal]
  - Pancytopenia [Unknown]
  - Composite lymphoma [Unknown]
  - Immune-mediated enterocolitis [Unknown]
